FAERS Safety Report 23524959 (Version 6)
Quarter: 2024Q3

REPORT INFORMATION
  Report Type: Spontaneous
  Country: US (occurrence: US)
  Receive Date: 20240215
  Receipt Date: 20240912
  Transmission Date: 20241017
  Serious: Yes (Hospitalization, Other)
  Sender: TEVA
  Company Number: US-TEVA-VS-3154435

PATIENT
  Age: 44 Year
  Sex: Female

DRUGS (5)
  1. BUPRENORPHINE [Suspect]
     Active Substance: BUPRENORPHINE
     Indication: Pain
     Dosage: TIME INTERVAL: 0.33333333 DAYS: HALF TABLET THREE TIMES A DAY
     Route: 060
     Dates: start: 201808
  2. HYDROCHLOROTHIAZIDE [Concomitant]
     Active Substance: HYDROCHLOROTHIAZIDE
     Indication: Product used for unknown indication
     Route: 065
  3. PANTOPRAZOLE [Concomitant]
     Active Substance: PANTOPRAZOLE
     Indication: Gastrooesophageal reflux disease
     Route: 065
  4. ATORVASTATIN [Concomitant]
     Active Substance: ATORVASTATIN
     Indication: Product used for unknown indication
     Route: 065
  5. MOVANTIK [Concomitant]
     Active Substance: NALOXEGOL OXALATE
     Indication: Constipation
     Route: 065

REACTIONS (41)
  - Near death experience [Recovered/Resolved]
  - Gastrointestinal inflammation [Not Recovered/Not Resolved]
  - Inflammatory bowel disease [Not Recovered/Not Resolved]
  - Incision site haemorrhage [Recovered/Resolved]
  - Gastrooesophageal reflux disease [Not Recovered/Not Resolved]
  - Catatonia [Recovered/Resolved]
  - Sedation complication [Recovered/Resolved]
  - Intestinal obstruction [Recovered/Resolved]
  - Toothache [Not Recovered/Not Resolved]
  - Tooth infection [Not Recovered/Not Resolved]
  - Neuralgia [Not Recovered/Not Resolved]
  - Tooth loss [Not Recovered/Not Resolved]
  - Weight decreased [Recovered/Resolved]
  - Somnolence [Recovered/Resolved]
  - Drooling [Unknown]
  - Disturbance in attention [Recovered/Resolved]
  - Vomiting [Not Recovered/Not Resolved]
  - Cognitive disorder [Recovered/Resolved]
  - Gastrointestinal pain [Not Recovered/Not Resolved]
  - Gastritis [Not Recovered/Not Resolved]
  - Post procedural complication [Not Recovered/Not Resolved]
  - Withdrawal syndrome [Recovered/Resolved]
  - Dental caries [Not Recovered/Not Resolved]
  - Loss of bladder sensation [Recovered/Resolved]
  - Gait inability [Unknown]
  - Feeding disorder [Not Recovered/Not Resolved]
  - Anxiety [Unknown]
  - Internal haemorrhage [Unknown]
  - Pain [Not Recovered/Not Resolved]
  - Procedural pain [Not Recovered/Not Resolved]
  - Insurance issue [Unknown]
  - Emotional distress [Recovering/Resolving]
  - Quality of life decreased [Not Recovered/Not Resolved]
  - Personal relationship issue [Unknown]
  - Constipation [Recovered/Resolved]
  - Diarrhoea [Recovered/Resolved]
  - Hyperhidrosis [Unknown]
  - Agitation [Recovered/Resolved]
  - Muscle spasms [Recovered/Resolved]
  - Fatigue [Recovered/Resolved]
  - Restlessness [Recovered/Resolved]

NARRATIVE: CASE EVENT DATE: 20180101
